FAERS Safety Report 8991283 (Version 2)
Quarter: 2017Q4

REPORT INFORMATION
  Report Type: Report from Study
  Country: US (occurrence: US)
  Receive Date: 20121231
  Receipt Date: 20171115
  Transmission Date: 20180321
  Serious: Yes (Other)
  Sender: FDA-Public Use
  Company Number: US-ROCHE-1172231

PATIENT
  Age: 50 Year
  Sex: Female
  Weight: 62.9 kg

DRUGS (4)
  1. CARBOPLATIN. [Suspect]
     Active Substance: CARBOPLATIN
     Indication: OVARIAN EPITHELIAL CANCER
     Dosage: AUC = 6,OVER 30 MINS ON DAY 1, LAST ADMINISTERED DATE: 08/OCT/2012
     Route: 042
     Dates: start: 20120714
  2. VELIPARIB [Suspect]
     Active Substance: VELIPARIB
     Indication: OVARIAN EPITHELIAL CANCER
     Dosage: ON DAYS -2-5, LAST ADMINISTERED DATE: 29/OCT/2012
     Route: 048
     Dates: start: 20120716
  3. PACLITAXEL. [Suspect]
     Active Substance: PACLITAXEL
     Indication: OVARIAN EPITHELIAL CANCER
     Dosage: OVER 1 HR ON DAYS 1, 8, 15, LAST ADMINISTERED DATE: 22/OCT/2012
     Route: 042
     Dates: start: 20120714
  4. BEVACIZUMAB. [Suspect]
     Active Substance: BEVACIZUMAB
     Indication: OVARIAN EPITHELIAL CANCER
     Dosage: OVER 30-90 MINS ON DAY 1, LAST ADMINISTERED DATE: 08/OCT/2012?COURSE 2,  NO DOSE CHANGE, MOST RECENT
     Route: 042
     Dates: start: 20120714

REACTIONS (3)
  - Neutrophil count decreased [Unknown]
  - Vascular access complication [Recovering/Resolving]
  - Embolism [Recovering/Resolving]

NARRATIVE: CASE EVENT DATE: 20121028
